FAERS Safety Report 21531798 (Version 1)
Quarter: 2022Q4

REPORT INFORMATION
  Report Type: Report from Study
  Country: US (occurrence: US)
  Receive Date: 20221101
  Receipt Date: 20221101
  Transmission Date: 20230113
  Serious: Yes (Other)
  Sender: FDA-Public Use
  Company Number: US-ABBVIE-4172081

PATIENT
  Sex: Male

DRUGS (3)
  1. HUMIRA [Suspect]
     Active Substance: ADALIMUMAB
     Indication: Arthritis
     Dosage: DRUG START DATE- MARCH OR APRIL 2022?LAST ADMIN DATE- 2022
     Route: 058
  2. MODERNA COVID-19 VACCINE [Concomitant]
     Active Substance: ELASOMERAN
     Indication: COVID-19 immunisation
     Dosage: 1 IN ONCE
     Route: 030
  3. MODERNA COVID-19 VACCINE [Concomitant]
     Active Substance: ELASOMERAN
     Indication: COVID-19 immunisation
     Dosage: BOOSTER DOSE/1 IN ONCE
     Route: 030

REACTIONS (7)
  - Joint lock [Unknown]
  - Pain [Unknown]
  - Carpal tunnel syndrome [Unknown]
  - Nerve compression [Unknown]
  - Pain [Unknown]
  - Off label use [Not Recovered/Not Resolved]
  - Paraesthesia [Unknown]
